FAERS Safety Report 6063316-1 (Version None)
Quarter: 2009Q1

REPORT INFORMATION
  Report Type: 
  Country: None (occurrence: None)
  Receive Date: 20090203
  Receipt Date: 20090127
  Transmission Date: 20090719
  Serious: Yes (Other)
  Sender: FDA-Public Use
  Company Number: US-ASTRAZENECA-2009UW02398

PATIENT
  Sex: Female

DRUGS (1)
  1. SEROQUEL [Suspect]
     Dosage: DOCTOR PRESCRIBED 2 AT BEDTIME - PATIENT SLEEPS OK WITH JUST ONE.
     Route: 048
     Dates: start: 20081027

REACTIONS (6)
  - DEPRESSION [None]
  - FALL [None]
  - FEELING ABNORMAL [None]
  - NASOPHARYNGITIS [None]
  - ROAD TRAFFIC ACCIDENT [None]
  - SURGERY [None]
